FAERS Safety Report 8431463-2 (Version None)
Quarter: 2012Q2

REPORT INFORMATION
  Report Type: 
  Country: None (occurrence: None)
  Receive Date: 20120607
  Receipt Date: 20120607
  Transmission Date: 20120825
  Serious: Yes (Other)
  Sender: FDA-Public Use
  Company Number: None

PATIENT
  Sex: Female
  Weight: 49.4421 kg

DRUGS (2)
  1. NORGESTIMATE AND ETHINYL ESTRADIOL [Suspect]
     Dosage: 1 TABLET A DAY
     Dates: start: 20120416
  2. NORGESTIMATE AND ETHINYL ESTRADIOL [Suspect]
     Dosage: 1 TABLET A DAY
     Dates: start: 20120420

REACTIONS (6)
  - THROMBOSIS [None]
  - DEPRESSION [None]
  - CHEST PAIN [None]
  - IMPAIRED WORK ABILITY [None]
  - ANXIETY [None]
  - PAIN IN EXTREMITY [None]
